FAERS Safety Report 8264103-6 (Version None)
Quarter: 2012Q2

REPORT INFORMATION
  Report Type: 
  Country: None (occurrence: None)
  Receive Date: 20120406
  Receipt Date: 20120330
  Transmission Date: 20120825
  Serious: No
  Sender: FDA-Public Use
  Company Number: US-BIOGENIDEC-2012BI011334

PATIENT
  Age: 68 Year
  Sex: Female

DRUGS (5)
  1. TYSABRI [Suspect]
     Route: 042
     Dates: start: 20110615
  2. TYSABRI [Suspect]
     Indication: MULTIPLE SCLEROSIS
     Route: 042
  3. AVONEX [Concomitant]
     Route: 030
  4. AVONEX [Concomitant]
     Indication: MULTIPLE SCLEROSIS
     Route: 030
     Dates: start: 20060728, end: 20070301
  5. TYSABRI [Suspect]
     Route: 042
     Dates: start: 20090618, end: 20090813

REACTIONS (1)
  - INFUSION RELATED REACTION [None]
